FAERS Safety Report 7166631-3 (Version None)
Quarter: 2010Q4

REPORT INFORMATION
  Report Type: 
  Country: None (occurrence: None)
  Receive Date: 20101216
  Receipt Date: 20101211
  Transmission Date: 20110411
  Serious: Yes (Hospitalization, Other)
  Sender: FDA-Public Use
  Company Number: US-PFIZER INC-2010066460

PATIENT
  Age: 72 Year
  Sex: Female
  Weight: 112.7 kg

DRUGS (2)
  1. SUNITINIB MALATE [Suspect]
     Indication: ADENOCARCINOMA
     Dosage: 50 MG, 1X/DAY, CYCLE 1 ON DAYS 1-28
     Route: 048
     Dates: start: 20100503, end: 20100524
  2. HYDROXYCHLOROQUINE [Suspect]
     Indication: NEOPLASM MALIGNANT
     Dosage: 200 MG, 1X/DAY, ON DAYS 4-42
     Route: 048
     Dates: start: 20100503, end: 20100524

REACTIONS (5)
  - DEHYDRATION [None]
  - FATIGUE [None]
  - HYPOCALCAEMIA [None]
  - IMPAIRED GASTRIC EMPTYING [None]
  - ORAL DYSAESTHESIA [None]
